FAERS Safety Report 7818355-4 (Version None)
Quarter: 2011Q4

REPORT INFORMATION
  Report Type: 
  Country: None (occurrence: None)
  Receive Date: 20111017
  Receipt Date: 20111005
  Transmission Date: 20120403
  Serious: Yes (Other)
  Sender: FDA-Public Use
  Company Number: JP-ASTRAZENECA-2011SE61211

PATIENT
  Age: 44 Year
  Sex: Female

DRUGS (8)
  1. SEROQUEL [Suspect]
     Indication: DEPRESSION
     Route: 048
     Dates: start: 20110913, end: 20110928
  2. SEROQUEL [Suspect]
     Route: 048
     Dates: start: 20110929, end: 20111004
  3. FAMOTIDINE [Concomitant]
     Route: 065
  4. LEXOTAN [Concomitant]
     Route: 048
  5. PAXIL [Concomitant]
     Route: 048
  6. GOODMIN [Concomitant]
     Route: 048
  7. LEVOTHYROXINE SODIUM [Concomitant]
     Route: 048
  8. DEPAS [Concomitant]
     Route: 048

REACTIONS (2)
  - URINARY RETENTION [None]
  - OFF LABEL USE [None]
